FAERS Safety Report 17022999 (Version 1)
Quarter: 2019Q4

REPORT INFORMATION
  Report Type: Spontaneous
  Country: US (occurrence: US)
  Receive Date: 20191008
  Receipt Date: 20191008
  Transmission Date: 20200122
  Serious: Yes (Hospitalization)
  Sender: FDA-Public Use
  Company Number: None

PATIENT
  Age: 59 Year
  Sex: Female

DRUGS (18)
  1. EXEMESTANE. [Concomitant]
     Active Substance: EXEMESTANE
  2. PAXIL [Concomitant]
     Active Substance: PAROXETINE HYDROCHLORIDE
  3. VITAMIN B12 [Concomitant]
     Active Substance: CYANOCOBALAMIN
  4. AMLODIPINE [Concomitant]
     Active Substance: AMLODIPINE BESYLATE
  5. CLONIDINE. [Concomitant]
     Active Substance: CLONIDINE
  6. CELECOXIB. [Concomitant]
     Active Substance: CELECOXIB
  7. OMEPRAZOLE. [Concomitant]
     Active Substance: OMEPRAZOLE
  8. PRAVASTATIN. [Concomitant]
     Active Substance: PRAVASTATIN
  9. VITAMIN D [Concomitant]
     Active Substance: VITAMIN D NOS
  10. DICLOFENAC [Concomitant]
     Active Substance: DICLOFENAC
  11. FOLIC ACID IRON [Concomitant]
  12. KEPPRA [Concomitant]
     Active Substance: LEVETIRACETAM
  13. IRON [Concomitant]
     Active Substance: IRON
  14. IBRANCE [Suspect]
     Active Substance: PALBOCICLIB
     Indication: BREAST CANCER FEMALE
     Route: 048
     Dates: start: 20190912
  15. MULTI-VITAMIN [Concomitant]
     Active Substance: .ALPHA.-TOCOPHEROL ACETATE, DL-\ASCORBIC ACID\CYANOCOBALAMIN\FLUORIDE ION\FOLIC ACID\NIACIN\PYRIDOXINE\RIBOFLAVIN\THIAMINE\VITAMIN A\VITAMIN D
  16. POT CL [Concomitant]
  17. METHOTREXATE. [Concomitant]
     Active Substance: METHOTREXATE
  18. OXYCODONE [Concomitant]
     Active Substance: OXYCODONE

REACTIONS (2)
  - Therapy cessation [None]
  - Seizure [None]

NARRATIVE: CASE EVENT DATE: 20190921
